FAERS Safety Report 7190178-1 (Version None)
Quarter: 2010Q4

REPORT INFORMATION
  Report Type: 
  Country: None (occurrence: None)
  Receive Date: 20101210
  Receipt Date: 20101125
  Transmission Date: 20110411
  Serious: Yes (Hospitalization, Disabling, Other)
  Sender: FDA-Public Use
  Company Number: IDR-00415

PATIENT
  Age: 48 Year
  Sex: Male

DRUGS (7)
  1. INDERAL [Suspect]
     Indication: MIGRAINE
     Dosage: 80 MG DAILY ORAL FORMULATION: CAPSULE CONTR REL
     Route: 048
     Dates: start: 20010101, end: 20100101
  2. XANAX [Concomitant]
  3. (AMITRIPTYLINE) [Concomitant]
  4. (QUININE) [Concomitant]
  5. LORAZEPAM [Concomitant]
  6. (PANTOPRAZOLE) [Concomitant]
  7. LEXOTAN (BROMAZEPAM) [Concomitant]

REACTIONS (11)
  - DEEP VEIN THROMBOSIS [None]
  - DIARRHOEA [None]
  - FATIGUE [None]
  - GAIT DISTURBANCE [None]
  - JOINT SWELLING [None]
  - MUSCLE SPASMS [None]
  - NIGHTMARE [None]
  - PAIN IN EXTREMITY [None]
  - PERIPHERAL COLDNESS [None]
  - SLEEP DISORDER [None]
  - VISUAL IMPAIRMENT [None]
